FAERS Safety Report 18102929 (Version 1)
Quarter: 2020Q3

REPORT INFORMATION
  Report Type: Spontaneous
  Country: CN (occurrence: CN)
  Receive Date: 20200803
  Receipt Date: 20200803
  Transmission Date: 20201103
  Serious: Yes (Death, Hospitalization)
  Sender: FDA-Public Use
  Company Number: CN-STRIDES ARCOLAB LIMITED-2020SP008700

PATIENT
  Age: 59 Year
  Sex: Male

DRUGS (5)
  1. TACROLIMUS. [Suspect]
     Active Substance: TACROLIMUS
     Dosage: UNK, (DOSE REDUCED TO HALF)
     Route: 065
     Dates: start: 202002
  2. ENTECAVIR. [Concomitant]
     Active Substance: ENTECAVIR
     Indication: HEPATITIS B
     Dosage: UNK
     Route: 065
  3. TACROLIMUS. [Suspect]
     Active Substance: TACROLIMUS
     Indication: PROPHYLAXIS AGAINST TRANSPLANT REJECTION
     Dosage: UNK
     Route: 065
     Dates: start: 2017
  4. MYCOPHENOLATE MOFETIL. [Suspect]
     Active Substance: MYCOPHENOLATE MOFETIL
     Indication: PROPHYLAXIS AGAINST TRANSPLANT REJECTION
     Dosage: UNK
     Route: 065
     Dates: start: 2017
  5. MYCOPHENOLATE MOFETIL. [Suspect]
     Active Substance: MYCOPHENOLATE MOFETIL
     Dosage: UNK, (DOSE REDUCED TO HALF)
     Route: 065
     Dates: start: 202002

REACTIONS (22)
  - Chills [Unknown]
  - Pseudomonas infection [Fatal]
  - Multiple organ dysfunction syndrome [Unknown]
  - COVID-19 pneumonia [Unknown]
  - Fatigue [Unknown]
  - Hypoxia [Unknown]
  - COVID-19 [Unknown]
  - Liver transplant rejection [Unknown]
  - Splenomegaly [Unknown]
  - Cough [Unknown]
  - Pleural effusion [Unknown]
  - Nosocomial infection [Fatal]
  - Pneumonitis [Unknown]
  - Septic shock [Fatal]
  - Respiratory failure [Unknown]
  - Diarrhoea [Unknown]
  - Ascites [Unknown]
  - Acute kidney injury [Unknown]
  - Candida infection [Fatal]
  - Pneumothorax [Unknown]
  - Pyrexia [Unknown]
  - Jaundice [Unknown]

NARRATIVE: CASE EVENT DATE: 2020
